FAERS Safety Report 6329293-0 (Version None)
Quarter: 2009Q3

REPORT INFORMATION
  Report Type: 
  Country: None (occurrence: None)
  Receive Date: 20090826
  Receipt Date: 20090721
  Transmission Date: 20100115
  Serious: Yes (Death, Hospitalization, Other)
  Sender: FDA-Public Use
  Company Number: AU-CELGENEUS-008-C5013-07121301

PATIENT
  Sex: Male
  Weight: 100 kg

DRUGS (2)
  1. CC-5013 [Suspect]
     Indication: MULTIPLE MYELOMA
     Route: 048
     Dates: start: 20071012, end: 20071129
  2. DEXAMETHASONE [Suspect]
     Indication: MULTIPLE MYELOMA
     Route: 048
     Dates: start: 20071012, end: 20071128

REACTIONS (5)
  - AGITATION [None]
  - MULTIPLE MYELOMA [None]
  - NEOPLASM OF ORBIT [None]
  - OEDEMA GENITAL [None]
  - OEDEMA PERIPHERAL [None]
